FAERS Safety Report 4790312-4 (Version None)
Quarter: 2005Q4

REPORT INFORMATION
  Report Type: 
  Country: None (occurrence: None)
  Receive Date: 20051005
  Receipt Date: 20051005
  Transmission Date: 20060501
  Serious: Yes (Hospitalization)
  Sender: FDA-Public Use
  Company Number: None

PATIENT
  Sex: Male

DRUGS (4)
  1. METFORMIN 500 MG [Suspect]
     Indication: DIABETES MELLITUS NON-INSULIN-DEPENDENT
     Dosage: BID PO
     Route: 048
  2. ENALAPRIL [Concomitant]
  3. IBUPROFEN [Concomitant]
  4. PENICILLIN V POTASSIUM [Concomitant]

REACTIONS (9)
  - BLOOD CREATININE INCREASED [None]
  - BLOOD GLUCOSE INCREASED [None]
  - BLOOD KETONE BODY PRESENT [None]
  - BLOOD PHOSPHORUS INCREASED [None]
  - CARBON DIOXIDE DECREASED [None]
  - DECREASED APPETITE [None]
  - DIABETES MELLITUS INADEQUATE CONTROL [None]
  - INFECTION [None]
  - JAW DISORDER [None]
